FAERS Safety Report 4696053-6 (Version None)
Quarter: 2005Q2

REPORT INFORMATION
  Report Type: 
  Country: None (occurrence: None)
  Receive Date: 20050621
  Receipt Date: 20050224
  Transmission Date: 20051028
  Serious: Yes (Hospitalization, Disabling)
  Sender: FDA-Public Use
  Company Number: US-ROCHE-397552

PATIENT
  Age: 16 Year
  Sex: Male
  Weight: 83.9 kg

DRUGS (6)
  1. ACCUTANE [Suspect]
     Indication: ACNE
     Route: 048
     Dates: start: 19920305, end: 19920815
  2. METHYLPHENIDATE HCL [Concomitant]
     Dosage: PATIENT PURCHASED A PRESCRIPTION ON 26-MAR-98.
  3. RITALIN [Concomitant]
     Dosage: PATIENT PURCHASED NUMEROUS PRESCRIPTIONS BETWEEN 8-MAY-98 THROUGH 24-AUG-98.
  4. DEXTROSTAT [Concomitant]
     Dosage: PATIENT PURCHASED A PRESCRIPTION ON 15 OCTOBER 1998.
  5. DEXEDRINE [Concomitant]
     Dosage: PATIENT PURCHASED PRESCRIPTIONS BETWEEN 17-NOV-98 AND 10-DEC-98.
  6. ADDERALL [Concomitant]
     Dosage: PATIENT PURCHASED PRESCRIPTIONS BETWEEN 9-JAN-99 AND 1-NOV-99.

REACTIONS (17)
  - ALOPECIA [None]
  - CAROTIDYNIA [None]
  - CROHN'S DISEASE [None]
  - DEPRESSION [None]
  - DRY EYE [None]
  - DRY SKIN [None]
  - DYSPEPSIA [None]
  - GASTROINTESTINAL DISORDER [None]
  - ILL-DEFINED DISORDER [None]
  - INFLAMMATORY BOWEL DISEASE [None]
  - INTESTINAL HAEMORRHAGE [None]
  - LIP DRY [None]
  - MULTI-ORGAN DISORDER [None]
  - NASAL DRYNESS [None]
  - POLYTRAUMATISM [None]
  - PRURITUS ANI [None]
  - RECTAL HAEMORRHAGE [None]
